FAERS Safety Report 5597911-0 (Version None)
Quarter: 2007Q4

REPORT INFORMATION
  Report Type: 
  Country: None (occurrence: None)
  Receive Date: 20071221
  Receipt Date: 20071115
  Transmission Date: 20080405
  Serious: Yes (Hospitalization)
  Sender: FDA-Public Use
  Company Number: PHEH2007US14959

PATIENT

DRUGS (1)
  1. FOCALIN XR [Suspect]

REACTIONS (1)
  - CONVULSION [None]
